FAERS Safety Report 12666769 (Version 1)
Quarter: 2016Q3

REPORT INFORMATION
  Report Type: Other
  Country: NL (occurrence: NL)
  Receive Date: 20160819
  Receipt Date: 20160819
  Transmission Date: 20161109
  Serious: Yes (Death, Hospitalization)
  Sender: FDA-Public Use
  Company Number: NL-LUPIN PHARMACEUTICALS INC.-2016-03571

PATIENT
  Age: 52 Year
  Sex: Female

DRUGS (1)
  1. ETHINYLESTRADIOL AND LEVONORGESTREL [Suspect]
     Active Substance: ETHINYL ESTRADIOL\LEVONORGESTREL
     Indication: MENOMETRORRHAGIA
     Route: 048

REACTIONS (5)
  - Pulmonary embolism [Fatal]
  - Aortic arteriosclerosis [None]
  - Cardiac arrest [None]
  - Varicose vein [None]
  - Pulseless electrical activity [None]
